FAERS Safety Report 6616302-4 (Version None)
Quarter: 2010Q1

REPORT INFORMATION
  Report Type: 
  Country: None (occurrence: None)
  Receive Date: 20100305
  Receipt Date: 20100225
  Transmission Date: 20100710
  Serious: Yes (Death)
  Sender: FDA-Public Use
  Company Number: GB-WATSON-2010-02412

PATIENT

DRUGS (9)
  1. SIMVASTATIN [Suspect]
     Indication: HYPERLIPIDAEMIA
     Dosage: 40 MG, DAILY
     Route: 048
     Dates: start: 20080208, end: 20090325
  2. ASPIRIN [Concomitant]
     Indication: MYOCARDIAL ISCHAEMIA
     Dosage: 75 MG, UNK
     Route: 065
     Dates: start: 20020909
  3. ATENOLOL [Concomitant]
     Indication: HYPERTENSION
     Dosage: 25 MG, DAILY
     Route: 065
     Dates: start: 20021018
  4. ATENOLOL [Concomitant]
     Indication: MYOCARDIAL ISCHAEMIA
  5. FUROSEMIDE [Concomitant]
     Indication: MYOCARDIAL ISCHAEMIA
     Dosage: 20 MG, DAILY
     Route: 065
     Dates: start: 20060808
  6. NITROGLYCERIN [Concomitant]
     Indication: ANGINA PECTORIS
     Dosage: 1 DF, UNK
     Route: 065
     Dates: start: 20050413
  7. RAMIPRIL [Concomitant]
     Indication: MYOCARDIAL ISCHAEMIA
     Dosage: 10 MG, DAILY
     Route: 065
     Dates: start: 20070702
  8. ROSUVASTATIN CALCIUM [Concomitant]
     Indication: DRUG USE FOR UNKNOWN INDICATION
     Dosage: 10 MG, DAILY
     Route: 065
     Dates: start: 20090108
  9. ROSUVASTATIN CALCIUM [Concomitant]
     Dosage: 20 MG, DAILY
     Route: 065
     Dates: start: 20080528, end: 20090108

REACTIONS (2)
  - CONDITION AGGRAVATED [None]
  - MYOCARDIAL ISCHAEMIA [None]
